FAERS Safety Report 9758467 (Version 1)
Quarter: 2013Q4

REPORT INFORMATION
  Report Type: Spontaneous
  Country: US (occurrence: None)
  Receive Date: 20131216
  Receipt Date: 20131216
  Transmission Date: 20140711
  Serious: No
  Sender: FDA-Public Use
  Company Number: CABO-13002504

PATIENT
  Age: 67 Year
  Sex: Female

DRUGS (3)
  1. COMETRIQ (CABOZANTINIB) [Suspect]
     Indication: BREAST CANCER FEMALE
     Dosage: 140 MG, QD, ORAL?100 MG, QD, ORAL
  2. COMETRIQ (CABOZANTINIB) [Suspect]
     Indication: BONE NEOPLASM
     Dosage: 140 MG, QD, ORAL?100 MG, QD, ORAL
  3. COMETRIQ (CABOZANTINIB) [Suspect]
     Indication: THYROID CANCER
     Dosage: 140 MG, QD, ORAL?100 MG, QD, ORAL

REACTIONS (11)
  - Lung disorder [None]
  - Pollakiuria [None]
  - Micturition urgency [None]
  - Pain [None]
  - Hypoaesthesia [None]
  - Fatigue [None]
  - Defaecation urgency [None]
  - Oral pain [None]
  - Oropharyngeal pain [None]
  - Nausea [None]
  - Vomiting [None]
